FAERS Safety Report 9225675 (Version 2)
Quarter: 2015Q1

REPORT INFORMATION
  Report Type: Spontaneous
  Country: US (occurrence: US)
  Receive Date: 20130411
  Receipt Date: 20150108
  Transmission Date: 20150721
  Serious: Yes (Death, Hospitalization, Other)
  Sender: FDA-Public Use
  Company Number: US-GLAXOSMITHKLINE-A1019644A

PATIENT
  Age: 55 Year
  Sex: Male

DRUGS (1)
  1. ADVAIR HFA [Suspect]
     Active Substance: FLUTICASONE PROPIONATE\SALMETEROL XINAFOATE
     Indication: PRODUCT USED FOR UNKNOWN INDICATION
     Dosage: 250/50
     Route: 065
     Dates: start: 20120530

REACTIONS (3)
  - Pneumonia [Unknown]
  - Stent placement [Unknown]
  - Death [Fatal]

NARRATIVE: CASE EVENT DATE: 20141213
